FAERS Safety Report 15997247 (Version 4)
Quarter: 2019Q4

REPORT INFORMATION
  Report Type: Report from Study
  Country: JP (occurrence: JP)
  Receive Date: 20190222
  Receipt Date: 20191007
  Transmission Date: 20200122
  Serious: Yes (Hospitalization, Other)
  Sender: FDA-Public Use
  Company Number: JP-BRISTOL-MYERS SQUIBB COMPANY-BMS-2019-016985

PATIENT
  Age: 69 Year
  Sex: Male
  Weight: 63.4 kg

DRUGS (15)
  1. MYSER                              /01249201/ [Concomitant]
     Active Substance: DIFLUPREDNATE
     Indication: PALMAR-PLANTAR ERYTHRODYSAESTHESIA SYNDROME
     Dosage: 15 MILLIGRAM, EVERYDAY
     Route: 061
     Dates: start: 20181105
  2. GLUCONSAN K [Concomitant]
     Active Substance: POTASSIUM GLUCONATE
     Indication: HYPOKALAEMIA
     Dosage: 1 GRAM, Q12H
     Route: 048
     Dates: start: 20190222
  3. LAC-B GRANULAR POWDER N [Concomitant]
     Indication: DIARRHOEA
     Dosage: 1 GRAM, Q8H
     Route: 048
     Dates: start: 20190806
  4. SAMSCA [Concomitant]
     Active Substance: TOLVAPTAN
     Indication: OEDEMA DUE TO HEPATIC DISEASE
     Dosage: 7.5 MILLIGRAM, EVERYDAY
     Route: 048
     Dates: start: 20190322
  5. NIVOLUMAB [Suspect]
     Active Substance: NIVOLUMAB
     Indication: HEPATOCELLULAR CARCINOMA
     Dosage: 240 MILLIGRAM, Q2WK
     Route: 041
     Dates: start: 20180827, end: 20190115
  6. DORAL [Concomitant]
     Active Substance: QUAZEPAM
     Indication: INSOMNIA
     Dosage: 15 MG, EVERYDAY
     Route: 048
     Dates: start: 20190115
  7. SPIRONOLACTONE. [Concomitant]
     Active Substance: SPIRONOLACTONE
     Indication: OEDEMA DUE TO HEPATIC DISEASE
     Dosage: 25 MILLIGRAM, EVERYDAY
     Route: 048
     Dates: start: 20190904
  8. FUROSEMIDE. [Concomitant]
     Active Substance: FUROSEMIDE
     Indication: OEDEMA DUE TO HEPATIC DISEASE
     Dosage: 20 MILLIGRAM, EVERYDAY
     Route: 048
     Dates: start: 20190917
  9. HEPAACT [Concomitant]
     Indication: HYPOALBUMINAEMIA
     Dosage: 1 DOSAGE FORM, Q8H
     Route: 048
     Dates: start: 20170927
  10. TRAZODONE HYDROCHLORIDE. [Concomitant]
     Active Substance: TRAZODONE HYDROCHLORIDE
     Indication: INSOMNIA
     Dosage: 25 MILLIGRAM, EVERYDAY
     Route: 048
     Dates: start: 20190314
  11. NEXIUM [Concomitant]
     Active Substance: ESOMEPRAZOLE MAGNESIUM
     Indication: PROPHYLAXIS AGAINST GASTROINTESTINAL ULCER
     Dosage: 20 MILLIGRAM, EVERYDAY
     Route: 048
     Dates: start: 20190217
  12. RIVOTRIL [Concomitant]
     Active Substance: CLONAZEPAM
     Indication: TREMOR
     Dosage: 0.5 MILLIGRAM, Q12H
     Route: 048
     Dates: start: 20190813
  13. PIARLE [Concomitant]
     Active Substance: LACTULOSE
     Indication: HYPERAMMONAEMIA
     Dosage: 20 MILLILITER, Q8H
     Route: 048
     Dates: start: 20181015
  14. LENVATINIB [Suspect]
     Active Substance: LENVATINIB
     Indication: HEPATOCELLULAR CARCINOMA
     Dosage: 4 MILLIGRAM, EVERYDAY
     Route: 065
     Dates: start: 20180827, end: 20190211
  15. BESOFTEN [Concomitant]
     Active Substance: PENTOSAN POLYSULFATE SODIUM
     Indication: PALMAR-PLANTAR ERYTHRODYSAESTHESIA SYNDROME
     Dosage: 15 MILLIGRAM, EVERYDAY
     Route: 061
     Dates: start: 20181105

REACTIONS (3)
  - Adrenocorticotropic hormone deficiency [Recovering/Resolving]
  - Ligament sprain [Recovered/Resolved]
  - Cholangitis sclerosing [Not Recovered/Not Resolved]

NARRATIVE: CASE EVENT DATE: 20190212
